FAERS Safety Report 7404890-X (Version None)
Quarter: 2011Q2

REPORT INFORMATION
  Report Type: 
  Country: None (occurrence: None)
  Receive Date: 20110411
  Receipt Date: 20110329
  Transmission Date: 20111010
  Serious: Yes (Hospitalization)
  Sender: FDA-Public Use
  Company Number: US-JNJFOC-20110312801

PATIENT
  Sex: Female
  Weight: 78.93 kg

DRUGS (2)
  1. DURAGESIC [Suspect]
     Route: 062
  2. DURAGESIC [Suspect]
     Indication: PAIN
     Route: 062

REACTIONS (5)
  - DRUG TOLERANCE [None]
  - ABDOMINAL PAIN UPPER [None]
  - HEPATIC PAIN [None]
  - PAIN [None]
  - THERAPEUTIC RESPONSE DECREASED [None]
